FAERS Safety Report 24299606 (Version 3)
Quarter: 2024Q3

REPORT INFORMATION
  Report Type: Spontaneous
  Country: DE (occurrence: DE)
  Receive Date: 20240909
  Receipt Date: 20240926
  Transmission Date: 20241016
  Serious: Yes (Hospitalization, Disabling, Other)
  Sender: SANDOZ
  Company Number: DE-NOVPHSZ-PHHY2018DE090309

PATIENT
  Age: 52 Year
  Sex: Female

DRUGS (25)
  1. ALEMTUZUMAB [Suspect]
     Active Substance: ALEMTUZUMAB
     Indication: Prophylaxis against transplant rejection
     Dosage: 1000 IU,NTRAOPERATIVELY
     Route: 065
  2. ALEMTUZUMAB [Suspect]
     Active Substance: ALEMTUZUMAB
     Indication: Immunosuppression
     Dosage: 30 MG, UNK (D 0 AND 1)
     Route: 065
     Dates: end: 201305
  3. CASPOFUNGIN [Suspect]
     Active Substance: CASPOFUNGIN
     Dosage: 2000 MG, QD
     Route: 065
     Dates: end: 201305
  4. CASPOFUNGIN [Suspect]
     Active Substance: CASPOFUNGIN
     Indication: Product used for unknown indication
     Dosage: D 0 AND 1
     Route: 065
     Dates: end: 201305
  5. CASPOFUNGIN [Suspect]
     Active Substance: CASPOFUNGIN
     Dosage: UNK
     Route: 065
     Dates: start: 201307
  6. CASPOFUNGIN [Suspect]
     Active Substance: CASPOFUNGIN
     Dosage: UNK
     Route: 065
  7. CASPOFUNGIN [Suspect]
     Active Substance: CASPOFUNGIN
     Dosage: TARGET TROUGH LEVEL 3-4 NG/ MICROLITER
     Route: 065
     Dates: start: 201306, end: 201308
  8. EVEROLIMUS [Suspect]
     Active Substance: EVEROLIMUS
     Indication: Prophylaxis against transplant rejection
     Dosage: UNK
     Route: 065
  9. EVEROLIMUS [Suspect]
     Active Substance: EVEROLIMUS
     Indication: Immunosuppression
     Dosage: UNK(TARGET TROUGH LEVEL2-3 NG/MICROLITRE)
     Route: 065
     Dates: start: 201309, end: 201312
  10. FOSCARNET SODIUM [Suspect]
     Active Substance: FOSCARNET SODIUM
     Indication: Antiviral prophylaxis
     Dosage: 180 MG/KG, QD
     Route: 065
     Dates: start: 201309
  11. GANCICLOVIR [Suspect]
     Active Substance: GANCICLOVIR
     Indication: Antiviral prophylaxis
     Dosage: 5 MG/KG, QD
     Route: 042
  12. INFLIXIMAB [Suspect]
     Active Substance: INFLIXIMAB
     Indication: Immunosuppression
     Dosage: 5 MG/KG, UNK
     Route: 042
     Dates: start: 201310
  13. INFLIXIMAB [Suspect]
     Active Substance: INFLIXIMAB
     Dosage: UNK
     Route: 065
  14. MYCOPHENOLATE MOFETIL [Suspect]
     Active Substance: MYCOPHENOLATE MOFETIL
     Indication: Immunosuppression
     Dosage: 2000 MG, QD
     Route: 065
     Dates: end: 201305
  15. MYCOPHENOLATE MOFETIL [Suspect]
     Active Substance: MYCOPHENOLATE MOFETIL
     Indication: Prophylaxis against transplant rejection
  16. PREDNISOLONE [Suspect]
     Active Substance: PREDNISOLONE
     Indication: Immunosuppression
     Dosage: 1000 MG, UNK (INTRAOPERATIVELY),FOR 3 DAYS
     Route: 065
     Dates: end: 201305
  17. PREDNISOLONE [Suspect]
     Active Substance: PREDNISOLONE
     Dosage: 250 MG, QD
     Route: 065
     Dates: start: 201310, end: 201310
  18. PREDNISOLONE [Suspect]
     Active Substance: PREDNISOLONE
     Dosage: UNK (TAPERED DOWN TO MAINTENANCE DOSE OF 5 MG/D)
     Route: 065
  19. TACROLIMUS [Suspect]
     Active Substance: TACROLIMUS
     Indication: Immunosuppression
     Dosage: UNK (INITIAL TARGET TROUGH LEVEL 8?10 AND 6?7 NG/MICROLITRES)
     Route: 065
     Dates: start: 201305
  20. TACROLIMUS [Suspect]
     Active Substance: TACROLIMUS
     Indication: Prophylaxis against transplant rejection
     Dosage: UNK (TARGET TROUGH LEVEL 3-4 NG/MICROLITRE)
     Route: 065
     Dates: start: 201309, end: 201312
  21. VALGANCICLOVIR [Suspect]
     Active Substance: VALGANCICLOVIR
     Indication: Antiviral prophylaxis
     Dosage: 900 MG, QD
     Route: 065
  22. GANCICLOVIR [Concomitant]
     Active Substance: GANCICLOVIR
     Indication: Product used for unknown indication
     Dosage: UNK
     Route: 042
     Dates: start: 201307, end: 201312
  23. VALGANCICLOVIR [Concomitant]
     Active Substance: VALGANCICLOVIR
     Indication: Product used for unknown indication
     Dosage: 900 MG, QD
     Route: 065
  24. VALGANCICLOVIR [Concomitant]
     Active Substance: VALGANCICLOVIR
     Dosage: UNK
     Route: 065
     Dates: start: 201307
  25. VALGANCICLOVIR [Concomitant]
     Active Substance: VALGANCICLOVIR
     Dosage: UNK
     Route: 065
     Dates: start: 201312

REACTIONS (16)
  - Cytomegalovirus gastritis [Recovered/Resolved]
  - Cytomegalovirus infection [Recovered/Resolved]
  - Cytomegalovirus oesophagitis [Recovered/Resolved]
  - Oesophageal candidiasis [Recovered/Resolved]
  - Organ failure [Unknown]
  - Diarrhoea [Unknown]
  - Odynophagia [Unknown]
  - Vomiting [Unknown]
  - Pyrexia [Unknown]
  - Cytomegalovirus gastroenteritis [Unknown]
  - Oesophagitis ulcerative [Unknown]
  - Transplant rejection [Unknown]
  - Gastritis [Unknown]
  - Cytomegalovirus oesophagitis [Recovered/Resolved]
  - Leukaemia [Unknown]
  - Drug ineffective [Unknown]
